FAERS Safety Report 5020689-6 (Version None)
Quarter: 2006Q2

REPORT INFORMATION
  Report Type: 
  Country: None (occurrence: None)
  Receive Date: 20060602
  Receipt Date: 20060510
  Transmission Date: 20061013
  Serious: Yes (Other)
  Sender: FDA-Public Use
  Company Number: USA040466239

PATIENT
  Age: 78 Year
  Sex: Female
  Weight: 61.4 kg

DRUGS (29)
  1. FORTEO [Suspect]
     Indication: OSTEOPOROSIS
     Dosage: SEE IMAGE
     Dates: start: 20030527, end: 20030829
  2. FORTEO [Suspect]
     Indication: OSTEOPOROSIS
     Dosage: SEE IMAGE
     Dates: start: 20050707
  3. LEVOXYL [Concomitant]
  4. CALCIUM (CALCIUM) [Concomitant]
  5. VITAMIN E [Concomitant]
  6. MULTI-VITAMIN [Concomitant]
  7. FOLIC ACID [Concomitant]
  8. VITAMIN B12 [Concomitant]
  9. FOSAMAX [Concomitant]
  10. PROTONIX [Concomitant]
  11. HYZAAR [Concomitant]
  12. ASACOL [Concomitant]
  13. NORVASC [Concomitant]
  14. TENORMIN [Concomitant]
  15. MSM (MSM) [Concomitant]
  16. GLUCOSAMINE (GLUCOSAMINE) [Concomitant]
  17. MAGNESIUM (MAGNESIUM) [Concomitant]
  18. ASPIRIN [Concomitant]
  19. BIOTIN [Concomitant]
  20. Q 10 (UBIDECARENONE) [Concomitant]
  21. FISH OIL (FISH OIL) [Concomitant]
  22. ZINC (ZINC) [Concomitant]
  23. SELENIUM (SELENIUM) [Concomitant]
  24. VIOXX [Concomitant]
  25. CENTRUM [Concomitant]
  26. FORTEO PEN, 250MCG/ML (3ML) (FORTEO PEN 250MCG/ML (3ML)) PEN, DISPOSAB [Concomitant]
  27. FORTEO PEN, 250MCG/ML (3ML) (FORTEO PEN 250MCG/ML (3ML)) PEN, DISPOSAB [Concomitant]
  28. ATENOLOL [Concomitant]
  29. ZETIA [Concomitant]

REACTIONS (7)
  - HIP ARTHROPLASTY [None]
  - HYPERPARATHYROIDISM [None]
  - INJECTION SITE NODULE [None]
  - MOBILITY DECREASED [None]
  - NAIL DISORDER [None]
  - PHARMACEUTICAL PRODUCT COMPLAINT [None]
  - THERAPY NON-RESPONDER [None]
